FAERS Safety Report 8678307 (Version 3)
Quarter: 2013Q2

REPORT INFORMATION
  Report Type: Report from Study
  Country: US (occurrence: US)
  Receive Date: 20120723
  Receipt Date: 20130604
  Transmission Date: 20140414
  Serious: Yes (Death, Life-Threatening, Hospitalization, Other)
  Sender: FDA-Public Use
  Company Number: US-ACTELION-A-US2012-68689

PATIENT
  Age: 73 Year
  Sex: Male

DRUGS (18)
  1. TRACLEER [Suspect]
     Indication: PULMONARY ARTERIAL HYPERTENSION
     Dosage: UNK
     Route: 048
     Dates: end: 20120622
  2. TISSUE PLASMINOGEN ACTIVATOR, RECOMBINATIVE [Suspect]
     Dosage: UNK
  3. SILDENAFIL [Concomitant]
  4. ALLOPURINOL [Concomitant]
     Dosage: 100 MG, QD
  5. ANAGRELIDE HCL [Concomitant]
     Dosage: 0.5 MG, BID
  6. ASPIRIN [Concomitant]
     Dosage: 81 MG, UNK
  7. FENOFIBRATE [Concomitant]
     Dosage: 145 MG, UNK
  8. FUROSEMIDE [Concomitant]
     Dosage: 20 MG, UNK
  9. HYDRALAZINE [Concomitant]
     Dosage: 50 MG, TID
  10. HYDROXYUREA [Concomitant]
     Dosage: 500 MG, UNK
  11. INSULIN HUMULIN-N [Concomitant]
  12. LANTUS [Concomitant]
  13. ISOSORBIDE MONONITRATE [Concomitant]
     Dosage: 30 MG, UNK
  14. PREVACID [Concomitant]
     Dosage: 30 MG, UNK
  15. METOPROLOL [Concomitant]
     Dosage: 100 MG, Q12HRS
  16. NIFEDIPINE [Concomitant]
     Dosage: 60 MG, UNK
  17. NITROGLYCERIN [Concomitant]
     Dosage: 0.5 UNK, Q8H
  18. JANUVIA [Concomitant]
     Dosage: 50 MG, UNK

REACTIONS (6)
  - Ischaemic stroke [Fatal]
  - Haemorrhagic transformation stroke [Fatal]
  - Embolic cerebral infarction [Fatal]
  - Hemiplegia [Fatal]
  - Aphasia [Fatal]
  - Motor dysfunction [Fatal]
